FAERS Safety Report 9692867 (Version 1)
Quarter: 2013Q4

REPORT INFORMATION
  Report Type: Spontaneous
  Country: US (occurrence: US)
  Receive Date: 20131118
  Receipt Date: 20131118
  Transmission Date: 20140711
  Serious: Yes (Death)
  Sender: FDA-Public Use
  Company Number: US-JNJFOC-20131108835

PATIENT
  Age: 69 Year
  Sex: Male

DRUGS (13)
  1. XARELTO [Suspect]
     Indication: PULMONARY EMBOLISM
     Route: 048
  2. POTASSIUM [Concomitant]
     Route: 065
  3. MAGNESIUM [Concomitant]
     Route: 065
  4. ACET [Concomitant]
     Route: 065
  5. METOLAZONE [Concomitant]
     Route: 065
  6. WELLBUTRIN [Concomitant]
     Route: 065
  7. OMEPRAZOLE [Concomitant]
     Route: 065
  8. HYDROCODONE [Concomitant]
     Route: 065
  9. MORPHINE [Concomitant]
     Route: 065
  10. NALOXONE [Concomitant]
     Route: 065
  11. DOCUSATE [Concomitant]
     Route: 065
  12. HEPARIN [Concomitant]
     Route: 065
  13. ONDANSETRON [Concomitant]
     Route: 065

REACTIONS (2)
  - Death [Fatal]
  - Incorrect dose administered [Unknown]
